FAERS Safety Report 8275174-5 (Version None)
Quarter: 2012Q2

REPORT INFORMATION
  Report Type: 
  Country: None (occurrence: None)
  Receive Date: 20120411
  Receipt Date: 20120405
  Transmission Date: 20120825
  Serious: Yes (Other)
  Sender: FDA-Public Use
  Company Number: PHHY2012NL029527

PATIENT
  Sex: Female

DRUGS (7)
  1. ZOMETA [Suspect]
     Dosage: 4 MG/100 ML, 1X PER 42 DAYS IN 20 MINUTES
     Route: 042
     Dates: start: 20120405
  2. CODEINE [Concomitant]
     Dosage: 20 MG, UNK
  3. ZOMETA [Suspect]
     Indication: BREAST CANCER METASTATIC
     Dosage: 4 MG/100 ML, 1X PER 42 DAYS IN 20 MINUTES
     Route: 042
  4. ZOMETA [Suspect]
     Dosage: 4 MG/100 ML, 1X PER 42 DAYS IN 20 MINUTES
     Route: 042
     Dates: start: 20091015
  5. ARIMIDEX [Concomitant]
  6. TIMOLOL MALEATE [Suspect]
     Indication: GLAUCOMA
  7. ZOMETA [Suspect]
     Dosage: 4 MG/100 ML, 1X PER 42 DAYS IN 20 MINUTES
     Route: 042
     Dates: start: 20120223

REACTIONS (3)
  - NEOPLASM PROGRESSION [None]
  - COUGH [None]
  - NEOPLASM MALIGNANT [None]
